FAERS Safety Report 18295808 (Version 1)
Quarter: 2020Q3

REPORT INFORMATION
  Report Type: Spontaneous
  Country: US (occurrence: US)
  Receive Date: 20200922
  Receipt Date: 20200922
  Transmission Date: 20201103
  Serious: No
  Sender: FDA-Public Use
  Company Number: US-AMARIN PHARMA, INC.-2020AMR000122

PATIENT
  Age: 55 Year
  Sex: Female
  Weight: 120.76 kg

DRUGS (18)
  1. VENTOLIN [Concomitant]
     Active Substance: ALBUTEROL SULFATE
     Indication: EMPHYSEMA
     Dates: start: 2014
  2. RIZATRIPTAN. [Concomitant]
     Active Substance: RIZATRIPTAN
     Indication: MIGRAINE
     Route: 048
     Dates: start: 2000
  3. ROPINIROLE HCL [Concomitant]
     Active Substance: ROPINIROLE HYDROCHLORIDE
     Indication: RESTLESS LEGS SYNDROME
     Route: 048
     Dates: start: 2001
  4. JARDIANCE [Concomitant]
     Active Substance: EMPAGLIFLOZIN
     Indication: TYPE 2 DIABETES MELLITUS
     Route: 048
     Dates: start: 201908
  5. GLIPIZIDE ER [Concomitant]
     Active Substance: GLIPIZIDE
     Indication: TYPE 2 DIABETES MELLITUS
     Route: 048
     Dates: start: 2019
  6. ORENCIA [Concomitant]
     Active Substance: ABATACEPT
     Indication: RHEUMATOID ARTHRITIS
     Dates: start: 201911
  7. LEFLUNOMIDE. [Concomitant]
     Active Substance: LEFLUNOMIDE
     Indication: RHEUMATOID ARTHRITIS
     Route: 048
  8. TRULICITY [Concomitant]
     Active Substance: DULAGLUTIDE
     Indication: TYPE 2 DIABETES MELLITUS
     Dates: start: 2018
  9. CLONAZEPAM. [Concomitant]
     Active Substance: CLONAZEPAM
     Indication: ANXIETY
     Route: 048
  10. METFORMIN ER [Concomitant]
     Active Substance: METFORMIN HYDROCHLORIDE
     Indication: TYPE 2 DIABETES MELLITUS
     Route: 048
  11. ESCITALOPRAM [Concomitant]
     Active Substance: ESCITALOPRAM OXALATE
     Indication: ANXIETY
     Route: 048
  12. ROSUVASTATIN. [Concomitant]
     Active Substance: ROSUVASTATIN
     Indication: BLOOD CHOLESTEROL INCREASED
     Route: 048
  13. PANTOPRAZOLE [Concomitant]
     Active Substance: PANTOPRAZOLE
     Indication: GASTROOESOPHAGEAL REFLUX DISEASE
     Route: 048
  14. IBUPROFEN. [Concomitant]
     Active Substance: IBUPROFEN
     Indication: PAIN
     Route: 048
  15. VITAMIN D3 [Concomitant]
     Active Substance: CHOLECALCIFEROL
     Indication: VITAMIN D DECREASED
     Route: 048
     Dates: start: 201908
  16. VASCEPA [Suspect]
     Active Substance: ICOSAPENT ETHYL
     Indication: BLOOD TRIGLYCERIDES INCREASED
     Route: 048
     Dates: start: 201911
  17. NOVOLOG MIX 70/30 [Concomitant]
     Active Substance: INSULIN ASPART
     Indication: TYPE 2 DIABETES MELLITUS
     Route: 058
  18. ESCITALOPRAM [Concomitant]
     Active Substance: ESCITALOPRAM OXALATE
     Indication: DEPRESSION

REACTIONS (2)
  - Product odour abnormal [Unknown]
  - Product taste abnormal [Unknown]

NARRATIVE: CASE EVENT DATE: 20200204
